FAERS Safety Report 8882065 (Version 4)
Quarter: 2012Q4

REPORT INFORMATION
  Report Type: 
  Country: US (occurrence: US)
  Receive Date: 20121102
  Receipt Date: 20121221
  Transmission Date: 20130627
  Serious: Yes (Death, Life-Threatening, Hospitalization, Other)
  Sender: FDA-Public Use
  Company Number: US-BAYER-2012-113760

PATIENT
  Age: 54 Year
  Sex: Female
  Weight: 70.4 kg

DRUGS (28)
  1. SORAFENIB (RAF KINASE INHIBITOR) [Suspect]
     Indication: ACUTE MYELOID LEUKEMIA
     Dosage: 400 mg, BID
     Route: 048
     Dates: start: 20121005, end: 20121021
  2. SORAFENIB (RAF KINASE INHIBITOR) [Suspect]
     Indication: ACUTE MYELOID LEUKEMIA
     Dosage: 400 mg, BID
     Dates: start: 20121023, end: 20121024
  3. ACYCLOVIR [ACICLOVIR] [Concomitant]
     Dosage: 400 mg, TID
     Route: 048
  4. DAPSONE [Concomitant]
     Dosage: 100 mg, QD
     Route: 048
  5. FOLIC ACID [Concomitant]
     Dosage: 1 mg, QD
     Route: 048
  6. IMODIUM [Concomitant]
     Dosage: 2 mg, QID
     Route: 048
  7. LORAZEPAM [Concomitant]
     Indication: NAUSEA
     Dosage: 1 mg, PRN
     Route: 048
  8. LORAZEPAM [Concomitant]
     Indication: VOMITING
  9. MAG-OX [Concomitant]
     Dosage: 400 mg, QD
     Route: 048
  10. MVI [Concomitant]
     Dosage: 1 DF, QD
     Route: 048
  11. ONDANSETRON HYDROCHLORIDE [Concomitant]
     Dosage: 8 mg, TID
     Route: 048
  12. SYNTHROID [Concomitant]
     Dosage: 75 ?g, QD
     Route: 048
  13. TACROLIMUS [Concomitant]
     Dosage: 2.5 mg, BID
     Route: 048
  14. ZOVIRAX [Concomitant]
  15. ZITHROMAX [Concomitant]
  16. FENTANYL [Concomitant]
  17. HEPARIN [Concomitant]
     Route: 058
  18. ZYVOX [Concomitant]
  19. MAGNESIUM OXIDE [Concomitant]
  20. MAGNESIUM SULFATE [Concomitant]
  21. MEROPENEM [Concomitant]
  22. SOLU-MEDROL [Concomitant]
  23. MULTIVITAMIN [Concomitant]
  24. ZOFRAN [Concomitant]
  25. POTASSIUM CHLORIDE [Concomitant]
  26. PROGRAF [Concomitant]
  27. CYCLOPHOSPHAMIDE [Concomitant]
     Indication: ACUTE MYELOID LEUKAEMIA
     Dosage: UNK
     Dates: start: 20120630, end: 20120701
  28. ANTIFUNGALS [Concomitant]

REACTIONS (12)
  - Interstitial lung disease [Fatal]
  - Sepsis [Fatal]
  - Pneumonitis [None]
  - Pericardial effusion [None]
  - Headache [None]
  - Pyrexia [None]
  - Hypotension [None]
  - Thrombocytopenia [None]
  - Anaemia [None]
  - Renal impairment [None]
  - Systemic inflammatory response syndrome [None]
  - Hyponatraemia [None]
